FAERS Safety Report 12000528 (Version 1)
Quarter: 2016Q1

REPORT INFORMATION
  Report Type: Spontaneous
  Country: US (occurrence: None)
  Receive Date: 20160203
  Receipt Date: 20160203
  Transmission Date: 20160526
  Serious: Yes (Hospitalization)
  Sender: FDA-Public Use
  Company Number: None

PATIENT
  Age: 60 Year
  Sex: Female
  Weight: 76 kg

DRUGS (2)
  1. VANCOMYCIN 1 GRAM MYLAN [Suspect]
     Active Substance: VANCOMYCIN
  2. VANCOMYCIN 5 GRAM MYLAN INSTITUTIONAL [Suspect]
     Active Substance: VANCOMYCIN
     Indication: URINARY TRACT INFECTION
     Dosage: 1000 MG Q12  IV
     Route: 042
     Dates: start: 20151207, end: 20151216

REACTIONS (2)
  - Rash erythematous [None]
  - Rash macular [None]

NARRATIVE: CASE EVENT DATE: 20151211
